FAERS Safety Report 5926743-6 (Version None)
Quarter: 2008Q4

REPORT INFORMATION
  Report Type: 
  Country: None (occurrence: None)
  Receive Date: 20081017
  Receipt Date: 20081015
  Transmission Date: 20090506
  Serious: Yes (Other)
  Sender: FDA-Public Use
  Company Number: AZAES200800376

PATIENT
  Sex: Female

DRUGS (1)
  1. VIDAZA [Suspect]

REACTIONS (2)
  - ABORTION INDUCED [None]
  - PREGNANCY OF PARTNER [None]
